FAERS Safety Report 12605004 (Version 2)
Quarter: 2016Q3

REPORT INFORMATION
  Report Type: Spontaneous
  Country: FR (occurrence: FR)
  Receive Date: 20160728
  Receipt Date: 20160801
  Transmission Date: 20161109
  Serious: Yes (Hospitalization, Other)
  Sender: FDA-Public Use
  Company Number: FR-009507513-1607FRA010488

PATIENT
  Age: 60 Year
  Sex: Male
  Weight: 126 kg

DRUGS (15)
  1. QUESTRAN [Concomitant]
     Active Substance: CHOLESTYRAMINE
     Dosage: 4MG, 1 PACKET MORNING AND EVENING
  2. NOCTAMIDE [Concomitant]
     Active Substance: LORMETAZEPAM
     Dosage: 2MG 1 TABLET AT BEDTIME
  3. AZITHROMYCIN ANHYDROUS. [Concomitant]
     Active Substance: AZITHROMYCIN ANHYDROUS
     Dosage: 2 TABLETS AT MIDDAY 3 DAYS WEEKLY
  4. ULTIBRO [Concomitant]
     Active Substance: GLYCOPYRRONIUM\INDACATEROL
     Dosage: 1 DF, QAM
  5. INEXIUM (ESOMEPRAZOLE MAGNESIUM) [Concomitant]
     Active Substance: ESOMEPRAZOLE MAGNESIUM
     Dosage: 40 MG, ONE DF IN THE MORNING
  6. NOXAFIL [Suspect]
     Active Substance: POSACONAZOLE
     Dosage: 300 MG, QD
     Route: 048
  7. ARACYTINE [Concomitant]
     Active Substance: CYTARABINE
     Indication: CHEMOTHERAPY
     Dosage: 100MG/M2, 200MG QD ON DAY 1-7
     Dates: start: 20160513, end: 20160519
  8. VANCOMYCIN [Concomitant]
     Active Substance: VANCOMYCIN
     Dosage: UNK
  9. THERALEN [Concomitant]
     Active Substance: TRIMEPRAZINE
     Dosage: 50 DF, QPM
  10. TAZOCILLINE [Concomitant]
     Active Substance: PIPERACILLIN SODIUM\TAZOBACTAM SODIUM
     Dosage: UNK
  11. FLUVOXAMINE MALEATE. [Concomitant]
     Active Substance: FLUVOXAMINE MALEATE
     Dosage: 100 MG, ONE DF IN THE MORNING, ONE DF AT MIDDAY AND ONE DF IN THE EVENING
  12. CASPOFUNGIN ACETATE [Suspect]
     Active Substance: CASPOFUNGIN ACETATE
     Indication: CATHETER SITE INFLAMMATION
     Dosage: UNK
     Dates: start: 20160523
  13. TRANXENE T-TAB [Concomitant]
     Active Substance: CLORAZEPATE DIPOTASSIUM
     Dosage: 10 MG, ONE DF IN THE MORNING, ONE DF AT MIDDAY AND ONE DF IN THE EVENING
  14. EFFERALGAN [Concomitant]
     Active Substance: ACETAMINOPHEN
     Dosage: 1 G, ONE DF IN THE MORNING, ONE DF AT MIDDAY AND ONE DF IN THE EVENING
  15. ROCEPHINE [Concomitant]
     Active Substance: CEFTRIAXONE SODIUM
     Indication: PYREXIA
     Dosage: UNK
     Dates: start: 20160513, end: 201605

REACTIONS (4)
  - Sinusitis fungal [Unknown]
  - Cellulitis [Unknown]
  - Pseudomonal sepsis [Unknown]
  - Diplopia [Recovered/Resolved]

NARRATIVE: CASE EVENT DATE: 201605
